FAERS Safety Report 13659550 (Version 1)
Quarter: 2017Q2

REPORT INFORMATION
  Report Type: Spontaneous
  Country: US (occurrence: US)
  Receive Date: 20170616
  Receipt Date: 20170616
  Transmission Date: 20170830
  Serious: Yes (Hospitalization)
  Sender: FDA-Public Use
  Company Number: None

PATIENT
  Age: 84 Year
  Sex: Female
  Weight: 53.6 kg

DRUGS (11)
  1. WARFARIN [Suspect]
     Active Substance: WARFARIN
     Indication: ATRIAL FIBRILLATION
     Dosage: DATES OF USE - CHRONIC?DOSE - 2MG FREQUENCY - Q TTHSS?DOSE - 4MG FREQUENCY Q MWF
     Route: 048
  2. BUMEX [Concomitant]
     Active Substance: BUMETANIDE
  3. LOPRESSOR [Concomitant]
     Active Substance: METOPROLOL TARTRATE
  4. VITAMIN D3 [Concomitant]
     Active Substance: CHOLECALCIFEROL
  5. CARDIZEM CD [Concomitant]
     Active Substance: DILTIAZEM HYDROCHLORIDE
  6. TEMAZEPAM. [Concomitant]
     Active Substance: TEMAZEPAM
  7. PLAVIX [Suspect]
     Active Substance: CLOPIDOGREL BISULFATE
     Indication: ATRIAL FIBRILLATION
     Dosage: DATES OF USE - CHRONIC
     Route: 048
  8. METRONIDAZOLE. [Concomitant]
     Active Substance: METRONIDAZOLE
  9. APAP ER [Concomitant]
  10. ASA [Concomitant]
     Active Substance: ASPIRIN
  11. NTG [Concomitant]
     Active Substance: NITROGLYCERIN

REACTIONS (5)
  - Rectal haemorrhage [None]
  - Frequent bowel movements [None]
  - Nodal arrhythmia [None]
  - Gastrointestinal haemorrhage [None]
  - Anaemia [None]

NARRATIVE: CASE EVENT DATE: 20170326
